FAERS Safety Report 6783851-8 (Version None)
Quarter: 2010Q2

REPORT INFORMATION
  Report Type: 
  Country: None (occurrence: None)
  Receive Date: 20100622
  Receipt Date: 20100615
  Transmission Date: 20101027
  Serious: Yes (Life-Threatening, Hospitalization, Disabling)
  Sender: FDA-Public Use
  Company Number: US-CELGENEUS-163-21880-10050648

PATIENT
  Sex: Female

DRUGS (4)
  1. REVLIMID [Suspect]
     Route: 048
     Dates: start: 20100412, end: 20100425
  2. REVLIMID [Suspect]
     Route: 048
     Dates: start: 20100101, end: 20100501
  3. PROCRIT [Concomitant]
     Route: 065
     Dates: start: 20080101
  4. CYCLOSPORINE [Concomitant]
     Route: 065
     Dates: start: 20100603

REACTIONS (1)
  - PANCYTOPENIA [None]
